FAERS Safety Report 8474111-8 (Version None)
Quarter: 2012Q2

REPORT INFORMATION
  Report Type: 
  Country: None (occurrence: None)
  Receive Date: 20120628
  Receipt Date: 20120625
  Transmission Date: 20120825
  Serious: No
  Sender: FDA-Public Use
  Company Number: US-PFIZER INC-2012152746

PATIENT
  Sex: Female
  Weight: 97 kg

DRUGS (6)
  1. HYDROCHLOROTHIAZIDE [Concomitant]
     Indication: HYPERTENSION
     Dosage: 25 MG, UNK
  2. LYRICA [Suspect]
     Indication: NEURALGIA
     Dosage: 75 MG, 2X/DAY
     Route: 048
  3. LYRICA [Suspect]
     Dosage: 150 MG, 1X/DAY
     Route: 048
  4. LORATADINE [Concomitant]
     Dosage: 10 MG, UNK
  5. LYRICA [Suspect]
     Indication: FIBROMYALGIA
     Dosage: 150 MG, 2X/DAY
     Route: 048
  6. LISINOPRIL [Concomitant]
     Indication: HYPERTENSION
     Dosage: 5 MG, UNK

REACTIONS (5)
  - WITHDRAWAL SYNDROME [None]
  - NEURALGIA [None]
  - HEADACHE [None]
  - MUSCLE SPASMS [None]
  - HOT FLUSH [None]
